FAERS Safety Report 19488100 (Version 1)
Quarter: 2021Q3

REPORT INFORMATION
  Report Type: Spontaneous
  Country: US (occurrence: US)
  Receive Date: 20210702
  Receipt Date: 20210702
  Transmission Date: 20211014
  Serious: No
  Sender: FDA-Public Use
  Company Number: US-ASTRAZENECA-2021A511245

PATIENT
  Sex: Male
  Weight: 79.4 kg

DRUGS (1)
  1. BYDUREON BCISE [Suspect]
     Active Substance: EXENATIDE
     Indication: DIABETES MELLITUS
     Route: 065
     Dates: start: 2021, end: 202105

REACTIONS (7)
  - Blood glucose abnormal [Unknown]
  - Balance disorder [Unknown]
  - Visual impairment [Unknown]
  - Injection site muscle weakness [Unknown]
  - Injection site pain [Recovered/Resolved with Sequelae]
  - Injection site mass [Not Recovered/Not Resolved]
  - Exercise tolerance decreased [Unknown]
